FAERS Safety Report 8500506-X (Version None)
Quarter: 2012Q3

REPORT INFORMATION
  Report Type: 
  Country: None (occurrence: None)
  Receive Date: 20120705
  Receipt Date: 20120705
  Transmission Date: 20120928
  Serious: Yes (Hospitalization)
  Sender: FDA-Public Use
  Company Number: None

PATIENT
  Sex: Female
  Weight: 96.6 kg

DRUGS (1)
  1. INTRON A [Suspect]
     Dosage: 206 MU
     Dates: end: 20120622

REACTIONS (1)
  - RHABDOMYOLYSIS [None]
